FAERS Safety Report 24183944 (Version 1)
Quarter: 2024Q3

REPORT INFORMATION
  Report Type: Spontaneous
  Country: AE (occurrence: AE)
  Receive Date: 20240807
  Receipt Date: 20240807
  Transmission Date: 20241016
  Serious: Yes (Death)
  Sender: DR REDDYS
  Company Number: AE-Sudair Pharmaceutical Company-202400017

PATIENT
  Age: 51 Year
  Sex: Male

DRUGS (3)
  1. PEMETREXED [Suspect]
     Active Substance: PEMETREXED
     Indication: Non-small cell lung cancer
     Dosage: PEMETREXED SPC 1000 MG EVERY 3 WEEKS
     Route: 065
     Dates: start: 20240403, end: 20240515
  2. NIVOLUMAB [Concomitant]
     Active Substance: NIVOLUMAB
     Indication: Non-small cell lung cancer
     Dosage: NIVOLUMAB 360 MG EVERY 3 WEEKS
     Route: 065
  3. IPILIMUMAB [Concomitant]
     Active Substance: IPILIMUMAB
     Indication: Non-small cell lung cancer
     Dosage: IPILIMUMAB 66MG EVERY 6 WEEKS
     Route: 065

REACTIONS (1)
  - Pneumonia [Fatal]
